FAERS Safety Report 22185534 (Version 1)
Quarter: 2023Q2

REPORT INFORMATION
  Report Type: Spontaneous
  Country: US (occurrence: US)
  Receive Date: 20230407
  Receipt Date: 20230407
  Transmission Date: 20230721
  Serious: Yes (Other)
  Sender: FDA-Public Use
  Company Number: US-MLMSERVICE-20230323-4172344-1

PATIENT
  Age: 37 Year
  Sex: Male

DRUGS (1)
  1. GEMCITABINE [Suspect]
     Active Substance: GEMCITABINE
     Indication: Cutaneous T-cell lymphoma
     Route: 065

REACTIONS (5)
  - Performance status decreased [Unknown]
  - Cytopenia [Unknown]
  - Fatigue [Unknown]
  - Pyrexia [Unknown]
  - Drug ineffective [Unknown]
